FAERS Safety Report 15882667 (Version 1)
Quarter: 2019Q1

REPORT INFORMATION
  Report Type: Spontaneous
  Country: US (occurrence: US)
  Receive Date: 20190129
  Receipt Date: 20190129
  Transmission Date: 20190417
  Serious: No
  Sender: FDA-Public Use
  Company Number: US-SHIRE-US201902775

PATIENT
  Sex: Female

DRUGS (1)
  1. GAMMAGARD LIQUID [Suspect]
     Active Substance: HUMAN IMMUNOGLOBULIN G
     Indication: PRODUCT USED FOR UNKNOWN INDICATION
     Dosage: 20 GRAM
     Route: 042
     Dates: start: 20181228

REACTIONS (4)
  - Urticaria [Unknown]
  - Fatigue [Unknown]
  - Rash generalised [Unknown]
  - Face oedema [Unknown]

NARRATIVE: CASE EVENT DATE: 20181231
